FAERS Safety Report 5874028-9 (Version None)
Quarter: 2008Q3

REPORT INFORMATION
  Report Type: 
  Country: None (occurrence: None)
  Receive Date: 20080829
  Receipt Date: 20080814
  Transmission Date: 20090109
  Serious: Yes (Life-Threatening, Hospitalization)
  Sender: FDA-Public Use
  Company Number: IDA_00122

PATIENT
  Age: 27 Year
  Sex: Female

DRUGS (2)
  1. PROPRANOLOL [Suspect]
     Dosage: APPROXIMATELY 10 TABLETS TAKEN AT ONCE
  2. AMITRIPTYLINE HCL [Suspect]
     Dosage: ORAL FORMULATION: TABLET
     Route: 048

REACTIONS (29)
  - AREFLEXIA [None]
  - ARRHYTHMIA [None]
  - ASTHENIA [None]
  - ATRIOVENTRICULAR BLOCK [None]
  - ATRIOVENTRICULAR BLOCK FIRST DEGREE [None]
  - BRAIN OEDEMA [None]
  - BUNDLE BRANCH BLOCK [None]
  - COMA [None]
  - CONVULSION [None]
  - CRYING [None]
  - CYANOSIS [None]
  - DEHYDRATION [None]
  - DEPRESSION [None]
  - DRUG TOXICITY [None]
  - DYSPHORIA [None]
  - ELECTROCARDIOGRAM QT PROLONGED [None]
  - EMOTIONAL DISORDER [None]
  - HYPERPHAGIA [None]
  - HYPOCHLORAEMIA [None]
  - HYPONATRAEMIA [None]
  - IRRITABILITY [None]
  - LOSS OF CONSCIOUSNESS [None]
  - MULTIPLE DRUG OVERDOSE [None]
  - MYDRIASIS [None]
  - NAUSEA [None]
  - OROPHARYNGEAL PAIN [None]
  - PALLOR [None]
  - SELF-MEDICATION [None]
  - SHOCK [None]
